FAERS Safety Report 16522369 (Version 2)
Quarter: 2019Q3

REPORT INFORMATION
  Report Type: Spontaneous
  Country: US (occurrence: US)
  Receive Date: 20190703
  Receipt Date: 20190802
  Transmission Date: 20191004
  Serious: Yes (Other)
  Sender: FDA-Public Use
  Company Number: US-PFIZER INC-2019282961

PATIENT
  Age: 78 Year
  Sex: Female
  Weight: 90 kg

DRUGS (4)
  1. JANUMET [Concomitant]
     Active Substance: METFORMIN HYDROCHLORIDE\SITAGLIPTIN PHOSPHATE
     Indication: DIABETES MELLITUS
     Dosage: 1 DF, 2X/DAY
     Route: 048
     Dates: start: 2005
  2. LYRICA [Suspect]
     Active Substance: PREGABALIN
     Indication: RESTLESS LEGS SYNDROME
     Dosage: UNK, 2X/DAY
     Route: 048
  3. ALLEGRA [Concomitant]
     Active Substance: FEXOFENADINE HYDROCHLORIDE
     Indication: SEASONAL ALLERGY
     Dosage: UNK, 1X/DAY
     Route: 048
  4. ACIPHEX [Concomitant]
     Active Substance: RABEPRAZOLE SODIUM
     Indication: GASTROOESOPHAGEAL REFLUX DISEASE
     Dosage: UNK, 1X/DAY
     Route: 048

REACTIONS (5)
  - Off label use [Unknown]
  - Back pain [Unknown]
  - Spinal fracture [Unknown]
  - Product use in unapproved indication [Unknown]
  - Skin lesion [Not Recovered/Not Resolved]
